FAERS Safety Report 16258207 (Version 1)
Quarter: 2019Q2

REPORT INFORMATION
  Report Type: Spontaneous
  Country: IT (occurrence: IT)
  Receive Date: 20190430
  Receipt Date: 20190430
  Transmission Date: 20190711
  Serious: Yes (Other)
  Sender: FDA-Public Use
  Company Number: IT-BRISTOL-MYERS SQUIBB COMPANY-BMS-2019-039799

PATIENT
  Age: 51 Year
  Sex: Male
  Weight: 83 kg

DRUGS (3)
  1. OPDIVO [Suspect]
     Active Substance: NIVOLUMAB
     Indication: PRODUCT USED FOR UNKNOWN INDICATION
     Dosage: 3 MILLIGRAM/KILOGRAM, Q2WK
     Route: 065
     Dates: start: 201712
  2. OPDIVO [Suspect]
     Active Substance: NIVOLUMAB
     Indication: PRODUCT USED FOR UNKNOWN INDICATION
     Dosage: 240 MILLIGRAM, Q2WK
     Route: 065
     Dates: start: 201806
  3. OPDIVO [Suspect]
     Active Substance: NIVOLUMAB
     Indication: METASTATIC RENAL CELL CARCINOMA
     Dosage: 240 MILLIGRAM, Q2WK
     Route: 065
     Dates: start: 201705

REACTIONS (10)
  - Adrenal insufficiency [Recovered/Resolved]
  - Decreased appetite [Unknown]
  - Syncope [Recovered/Resolved]
  - Hyperlipasaemia [Recovered/Resolved]
  - Blood pressure decreased [Recovered/Resolved]
  - Fatigue [Unknown]
  - Mucosal inflammation [Unknown]
  - Thyroxine free decreased [Unknown]
  - Tri-iodothyronine free decreased [Unknown]
  - Blood thyroid stimulating hormone increased [Unknown]
